FAERS Safety Report 7063410-2 (Version None)
Quarter: 2010Q4

REPORT INFORMATION
  Report Type: 
  Country: None (occurrence: None)
  Receive Date: 20101026
  Receipt Date: 20091222
  Transmission Date: 20110411
  Serious: No
  Sender: FDA-Public Use
  Company Number: US-ABBOTT-09P-163-0616018-00

PATIENT
  Sex: Female

DRUGS (1)
  1. LUPRON DEPOT [Suspect]
     Indication: PRODUCT USED FOR UNKNOWN INDICATION
     Dosage: UNKNOWN

REACTIONS (7)
  - ANAEMIA [None]
  - ENDOMETRIAL NEOPLASM [None]
  - HAEMATOCRIT DECREASED [None]
  - KIDNEY INFECTION [None]
  - URETERIC OBSTRUCTION [None]
  - UTERINE LEIOMYOMA [None]
  - WHITE BLOOD CELL COUNT INCREASED [None]
